FAERS Safety Report 5890955-0 (Version None)
Quarter: 2008Q3

REPORT INFORMATION
  Report Type: 
  Country: None (occurrence: None)
  Receive Date: 20080922
  Receipt Date: 20080912
  Transmission Date: 20090109
  Serious: Yes (Hospitalization)
  Sender: FDA-Public Use
  Company Number: A0748244A

PATIENT
  Age: 60 Year
  Sex: Female
  Weight: 65.9 kg

DRUGS (6)
  1. AVANDIA [Suspect]
     Indication: DIABETES MELLITUS
     Dosage: 8MG PER DAY
     Route: 048
     Dates: start: 20050103, end: 20070101
  2. HUMALOG [Concomitant]
  3. INSULIN [Concomitant]
  4. TOPROL-XL [Concomitant]
  5. ATENOLOL [Concomitant]
  6. CLONIDINE [Concomitant]

REACTIONS (2)
  - ARRHYTHMIA [None]
  - CARDIAC FAILURE CONGESTIVE [None]
